FAERS Safety Report 9549350 (Version 1)
Quarter: 2013Q3

REPORT INFORMATION
  Report Type: Spontaneous
  Country: US (occurrence: US)
  Receive Date: 20130924
  Receipt Date: 20130924
  Transmission Date: 20140515
  Serious: Yes (Hospitalization)
  Sender: FDA-Public Use
  Company Number: US-MERCK-1209USA005756

PATIENT
  Age: 35 Year
  Sex: Male

DRUGS (7)
  1. SAPHRIS [Suspect]
  2. SEROQUEL [Suspect]
     Route: 048
  3. LAMOTRIGINE [Suspect]
  4. DOXEPIN HYDROCHLORIDE [Suspect]
  5. SYNTHROID [Suspect]
  6. LITHIUM CARBONATE [Suspect]
  7. OXCARBAZEPINE [Suspect]

REACTIONS (4)
  - Renal impairment [Unknown]
  - Bipolar disorder [Unknown]
  - Hypothyroidism [Unknown]
  - Drug dose omission [Unknown]
